FAERS Safety Report 8408580-6 (Version None)
Quarter: 2012Q2

REPORT INFORMATION
  Report Type: 
  Country: None (occurrence: None)
  Receive Date: 20120604
  Receipt Date: 20120527
  Transmission Date: 20120825
  Serious: No
  Sender: FDA-Public Use
  Company Number: US-BAYER-2012-054317

PATIENT

DRUGS (4)
  1. IBUPROFEN (ADVIL) [Concomitant]
  2. ALEVE (CAPLET) [Suspect]
  3. ACETAMINOPHEN [Concomitant]
  4. EXCEDRIN IB [Concomitant]

REACTIONS (1)
  - DRUG INEFFECTIVE [None]
